FAERS Safety Report 4624838-0 (Version None)
Quarter: 2005Q2

REPORT INFORMATION
  Report Type: 
  Country: None (occurrence: None)
  Receive Date: 20050325
  Receipt Date: 20050128
  Transmission Date: 20051028
  Serious: No
  Sender: FDA-Public Use
  Company Number: USA050187473

PATIENT
  Age: 73 Year
  Sex: Male
  Weight: 75 kg

DRUGS (4)
  1. FORTEO [Suspect]
     Indication: OSTEOPOROSIS
     Dosage: 20 UG DAY
     Dates: start: 20041103
  2. PREDNISONE [Concomitant]
  3. MULTIVITAMINS NOS (MULTIVITAMINS NOS) [Concomitant]
  4. CALCIUM CARBONATE [Concomitant]

REACTIONS (1)
  - HYPERCALCAEMIA [None]
